FAERS Safety Report 6861569-0 (Version None)
Quarter: 2010Q3

REPORT INFORMATION
  Report Type: 
  Country: None (occurrence: None)
  Receive Date: 20100721
  Receipt Date: 20100707
  Transmission Date: 20110219
  Serious: Yes (Other)
  Sender: FDA-Public Use
  Company Number: US-BAYER-201028057NA

PATIENT
  Age: 61 Year
  Sex: Male
  Weight: 123 kg

DRUGS (10)
  1. MAGNEVIST [Suspect]
     Indication: NUCLEAR MAGNETIC RESONANCE IMAGING
     Dates: start: 20000811, end: 20000811
  2. MAGNEVIST [Suspect]
     Dates: start: 20010727, end: 20010727
  3. UNKNOWN GBCA [Suspect]
     Indication: NUCLEAR MAGNETIC RESONANCE IMAGING
     Dates: start: 20000618, end: 20000618
  4. UNKNOWN GBCA [Suspect]
     Dates: start: 20050101, end: 20050101
  5. COREG [Concomitant]
  6. PLENDIL [Concomitant]
  7. NEPHROCAPS [Concomitant]
  8. PHOSLO [Concomitant]
  9. METRONIDAZOLE [Concomitant]
  10. EPOGEN [Concomitant]

REACTIONS (10)
  - EXTREMITY CONTRACTURE [None]
  - HYPOAESTHESIA [None]
  - JOINT RANGE OF MOTION DECREASED [None]
  - MOBILITY DECREASED [None]
  - MUSCULOSKELETAL STIFFNESS [None]
  - NEPHROGENIC SYSTEMIC FIBROSIS [None]
  - OEDEMA PERIPHERAL [None]
  - PARAESTHESIA [None]
  - SKIN INDURATION [None]
  - SKIN TIGHTNESS [None]
